FAERS Safety Report 13204679 (Version 1)
Quarter: 2017Q1

REPORT INFORMATION
  Report Type: Spontaneous
  Country: US (occurrence: US)
  Receive Date: 20170208
  Receipt Date: 20170208
  Transmission Date: 20170428
  Serious: Yes (Life-Threatening, Hospitalization, Other)
  Sender: FDA-Public Use
  Company Number: None

PATIENT
  Age: 65 Year
  Sex: Female
  Weight: 79.45 kg

DRUGS (1)
  1. SMZ-TMP [Suspect]
     Active Substance: SULFAMETHOXAZOLE\TRIMETHOPRIM
     Indication: SINUSITIS
     Route: 048
     Dates: start: 20170104, end: 20170112

REACTIONS (12)
  - Rash [None]
  - Mouth haemorrhage [None]
  - Urticaria [None]
  - Dyspnoea [None]
  - Headache [None]
  - Confusional state [None]
  - Swelling face [None]
  - Nausea [None]
  - Speech disorder [None]
  - Eye haemorrhage [None]
  - Dizziness [None]
  - Photophobia [None]

NARRATIVE: CASE EVENT DATE: 20170112
